FAERS Safety Report 4963415-9 (Version None)
Quarter: 2006Q1

REPORT INFORMATION
  Report Type: 
  Country: None (occurrence: None)
  Receive Date: 20060329
  Receipt Date: 20060313
  Transmission Date: 20060701
  Serious: Yes (Other)
  Sender: FDA-Public Use
  Company Number: 2006035398

PATIENT
  Age: 74 Year
  Sex: Female
  Weight: 93.441 kg

DRUGS (8)
  1. CELEBREX [Suspect]
     Indication: ARTHRITIS
  2. BEXTRA [Suspect]
     Indication: ARTHRITIS
  3. MECLIZINE [Suspect]
     Indication: DIZZINESS
     Dosage: (25 MG)
  4. SYNTHROID [Concomitant]
  5. DIURETICS (DIURETICS) [Concomitant]
  6. POTASSIUM (POTASSIUM) [Concomitant]
  7. METOLAZONE [Concomitant]
  8. METOPROLOL (METOPROLOL) [Concomitant]

REACTIONS (8)
  - BRADYKINESIA [None]
  - CEREBROVASCULAR ACCIDENT [None]
  - DIZZINESS [None]
  - FALL [None]
  - FOOT FRACTURE [None]
  - HEMIPLEGIA [None]
  - HYPOAESTHESIA [None]
  - UPPER LIMB FRACTURE [None]
